FAERS Safety Report 8103591-2 (Version None)
Quarter: 2012Q1

REPORT INFORMATION
  Report Type: 
  Country: None (occurrence: None)
  Receive Date: 20120201
  Receipt Date: 20120129
  Transmission Date: 20120608
  Serious: Yes (Other)
  Sender: FDA-Public Use
  Company Number: DE-ROCHE-1034988

PATIENT
  Sex: Female
  Weight: 60 kg

DRUGS (3)
  1. TELAPREVIR [Suspect]
     Indication: HEPATITIS C
  2. COPEGUS [Suspect]
     Indication: HEPATITIS C
  3. PEGINTERFERON ALFA-2A [Suspect]
     Indication: HEPATITIS C
     Route: 058
     Dates: start: 20111110

REACTIONS (1)
  - DERMATOSIS [None]
